FAERS Safety Report 18679175 (Version 2)
Quarter: 2021Q1

REPORT INFORMATION
  Report Type: Spontaneous
  Country: US (occurrence: US)
  Receive Date: 20201230
  Receipt Date: 20210303
  Transmission Date: 20210419
  Serious: Yes (Other)
  Sender: FDA-Public Use
  Company Number: US-ROCHE-2740317

PATIENT
  Sex: Female

DRUGS (5)
  1. OTEZLA [Suspect]
     Active Substance: APREMILAST
     Indication: PRODUCT USED FOR UNKNOWN INDICATION
     Route: 065
  2. XOLAIR [Suspect]
     Active Substance: OMALIZUMAB
  3. XOLAIR [Suspect]
     Active Substance: OMALIZUMAB
     Indication: MECHANICAL URTICARIA
     Dosage: 150 MG/ML
     Route: 058
     Dates: start: 20201102
  4. XOLAIR [Suspect]
     Active Substance: OMALIZUMAB
  5. PREDNISONE. [Concomitant]
     Active Substance: PREDNISONE
     Indication: PRURITUS

REACTIONS (4)
  - Immunodeficiency [Unknown]
  - COVID-19 [Unknown]
  - Intentional product use issue [Unknown]
  - Off label use [Unknown]
